FAERS Safety Report 8511826-7 (Version None)
Quarter: 2012Q3

REPORT INFORMATION
  Report Type: 
  Country: None (occurrence: None)
  Receive Date: 20120716
  Receipt Date: 20120712
  Transmission Date: 20120928
  Serious: Yes (Other)
  Sender: FDA-Public Use
  Company Number: US-PFIZER INC-2012168919

PATIENT
  Sex: Female
  Weight: 135 kg

DRUGS (4)
  1. THYROID TAB [Concomitant]
     Indication: THYROID DISORDER
     Dosage: 90 MG, 2X/DAY
     Route: 048
  2. XANAX [Concomitant]
     Indication: SLEEP DISORDER
     Dosage: 2 MG, DAILY
     Route: 048
  3. EFFEXOR [Suspect]
     Indication: DEPRESSION
     Dosage: 300 MG IN A DAY (FREQUENCY UNKNOWN)
     Route: 048
  4. AMITRIPTYLINE [Concomitant]
     Indication: SLEEP DISORDER
     Dosage: 25 MG, DAILY

REACTIONS (1)
  - GALLBLADDER DISORDER [None]
